FAERS Safety Report 4491863-2 (Version None)
Quarter: 2004Q4

REPORT INFORMATION
  Report Type: 
  Country: None (occurrence: None)
  Receive Date: 20041101
  Receipt Date: 20041019
  Transmission Date: 20050328
  Serious: Yes (Death, Life-Threatening, Hospitalization)
  Sender: FDA-Public Use
  Company Number: 2004PK01087

PATIENT
  Age: 42 Year
  Sex: Male
  Weight: 51 kg

DRUGS (8)
  1. IRESSA [Suspect]
     Indication: SMALL CELL CARCINOMA
     Dosage: 250 MG DAILY PO
     Route: 048
     Dates: start: 20040320, end: 20040421
  2. ANTIBIOTICS [Concomitant]
  3. DEXAMETHASONE [Concomitant]
  4. METOCLOPRAMIDE [Concomitant]
  5. NEXIUM [Concomitant]
  6. DURAGESIC [Concomitant]
  7. VIOXX [Concomitant]
  8. SEROPRAM [Concomitant]

REACTIONS (2)
  - HYPERCALCAEMIA [None]
  - PNEUMONIA [None]
